FAERS Safety Report 10579831 (Version 1)
Quarter: 2014Q4

REPORT INFORMATION
  Report Type: Spontaneous
  Country: US (occurrence: US)
  Receive Date: 20141112
  Receipt Date: 20141112
  Transmission Date: 20150529
  Serious: Yes (Hospitalization, Other)
  Sender: FDA-Public Use
  Company Number: US-GLAXOSMITHKLINE-US2014GSK020296

PATIENT
  Sex: Female

DRUGS (2)
  1. AVANDIA [Suspect]
     Active Substance: ROSIGLITAZONE MALEATE
     Indication: DIABETES MELLITUS
     Dosage: 04 MG, UNK
     Route: 048
     Dates: start: 19990604, end: 20001016
  2. AVANDIA [Suspect]
     Active Substance: ROSIGLITAZONE MALEATE
     Dosage: 08 MG, UNK
     Route: 048
     Dates: start: 20021220

REACTIONS (6)
  - Pulmonary embolism [Unknown]
  - Cardiac failure congestive [Unknown]
  - Acute myocardial infarction [Unknown]
  - Pulmonary oedema [Unknown]
  - Myocardial ischaemia [Unknown]
  - Coronary artery disease [Unknown]
